FAERS Safety Report 6815760-X (Version None)
Quarter: 2010Q3

REPORT INFORMATION
  Report Type: 
  Country: None (occurrence: None)
  Receive Date: 20100704
  Receipt Date: 20100624
  Transmission Date: 20110219
  Serious: Yes (Hospitalization, Other)
  Sender: FDA-Public Use
  Company Number: GB-BAUSCH-2010BL002926

PATIENT
  Age: 62 Year
  Sex: Male

DRUGS (11)
  1. DEXAMETHASONE [Suspect]
     Indication: MULTIPLE MYELOMA
     Route: 048
  2. BORTEZOMIB [Suspect]
     Indication: MULTIPLE MYELOMA
     Route: 042
  3. BORTEZOMIB [Suspect]
     Route: 042
  4. ACYCLOVIR [Concomitant]
     Indication: ANTIVIRAL PROPHYLAXIS
  5. FENTANYL [Concomitant]
     Indication: PAIN
     Route: 062
  6. FLUCONAZOLE [Concomitant]
     Indication: PROPHYLAXIS
  7. FUROSEMIDE [Concomitant]
     Indication: OEDEMA
  8. GLIMEPIRIDE [Concomitant]
     Indication: DIABETES MELLITUS
  9. LANSOPRAZOLE [Concomitant]
     Indication: PROPHYLAXIS
  10. METFORMIN HCL [Concomitant]
     Indication: DIABETES MELLITUS
  11. PIOGLITAZONE [Concomitant]
     Indication: DIABETES MELLITUS

REACTIONS (5)
  - DIARRHOEA [None]
  - ELECTROLYTE IMBALANCE [None]
  - LOWER RESPIRATORY TRACT INFECTION [None]
  - MYELOMA RECURRENCE [None]
  - PULMONARY EMBOLISM [None]
